FAERS Safety Report 9610935 (Version 1)
Quarter: 2013Q4

REPORT INFORMATION
  Report Type: Spontaneous
  Country: US (occurrence: US)
  Receive Date: 20131009
  Receipt Date: 20131009
  Transmission Date: 20140711
  Serious: No
  Sender: FDA-Public Use
  Company Number: US-009507513-1309USA009530

PATIENT
  Age: 56 Year
  Sex: Female
  Weight: 67.12 kg

DRUGS (5)
  1. VICTRELIS [Suspect]
     Dosage: 4 TABLETS, TID
     Route: 048
  2. PEGASYS [Suspect]
  3. REBETOL [Suspect]
  4. DICYCLOMINE HYDROCHLORIDE [Concomitant]
  5. CYANOCOBALAMIN [Concomitant]

REACTIONS (9)
  - White blood cell count decreased [Unknown]
  - Mood altered [Unknown]
  - Blister [Unknown]
  - Scratch [Unknown]
  - Crying [Unknown]
  - Rash generalised [Unknown]
  - Red blood cell count decreased [Unknown]
  - Pruritus [Unknown]
  - Dizziness [Unknown]
